FAERS Safety Report 9459408 (Version 1)
Quarter: 2013Q3

REPORT INFORMATION
  Report Type: Spontaneous
  Country: MX (occurrence: MX)
  Receive Date: 20130815
  Receipt Date: 20130815
  Transmission Date: 20140515
  Serious: Yes (Other)
  Sender: FDA-Public Use
  Company Number: MX-ROCHE-1262054

PATIENT
  Age: 93 Year
  Sex: Female
  Weight: 78 kg

DRUGS (4)
  1. BONVIVA [Suspect]
     Indication: OSTEOPOROSIS
     Route: 042
     Dates: start: 201305, end: 201308
  2. BONVIVA [Suspect]
     Indication: OSTEOARTHRITIS
  3. ARTRIDOL (MEXICO) [Suspect]
     Indication: OSTEOARTHRITIS
     Route: 048
     Dates: start: 201210
  4. DICLOFENAC [Concomitant]
     Indication: OSTEOARTHRITIS
     Route: 048
     Dates: start: 2003

REACTIONS (1)
  - Thrombocytopenia [Not Recovered/Not Resolved]
